FAERS Safety Report 4576203-2 (Version None)
Quarter: 2005Q1

REPORT INFORMATION
  Report Type: 
  Country: None (occurrence: None)
  Receive Date: 20050204
  Receipt Date: 20050124
  Transmission Date: 20050727
  Serious: Yes (Other)
  Sender: FDA-Public Use
  Company Number: 2005018885

PATIENT
  Sex: Female

DRUGS (6)
  1. LYRICA [Suspect]
     Indication: ILL-DEFINED DISORDER
     Dosage: ORAL
     Route: 048
  2. MIRTAZAPINE [Concomitant]
  3. FLUPIRTINE MALEATE (FLUPIRTINE MALEATE0 [Concomitant]
  4. AMLODIPINE BESILATE (AMLODIPINE BESILATE0 [Concomitant]
  5. ENALAPRIL MALEATE [Concomitant]
  6. OXYCODONE HCL [Concomitant]

REACTIONS (1)
  - HEPATIC NECROSIS [None]
